FAERS Safety Report 15006776 (Version 2)
Quarter: 2018Q2

REPORT INFORMATION
  Report Type: Report from Study
  Country: US (occurrence: US)
  Receive Date: 20180613
  Receipt Date: 20180614
  Transmission Date: 20180711
  Serious: No
  Sender: FDA-Public Use
  Company Number: US-US WORLDMEDS, LLC-USW201801-000157

PATIENT
  Age: 67 Year
  Sex: Male
  Weight: 75.29 kg

DRUGS (13)
  1. GABAPENTIN. [Concomitant]
     Active Substance: GABAPENTIN
  2. NUPLAZID [Concomitant]
     Active Substance: PIMAVANSERIN TARTRATE
  3. BACLOFEN. [Concomitant]
     Active Substance: BACLOFEN
  4. NAMENDA [Concomitant]
     Active Substance: MEMANTINE HYDROCHLORIDE
  5. TIGAN [Concomitant]
     Active Substance: TRIMETHOBENZAMIDE HYDROCHLORIDE
  6. TRIMETHOPRIM. [Concomitant]
     Active Substance: TRIMETHOPRIM
  7. APOKYN [Suspect]
     Active Substance: APOMORPHINE HYDROCHLORIDE
     Indication: PARKINSON^S DISEASE
     Route: 058
     Dates: start: 20180123, end: 20180123
  8. MYRBETRIQ [Concomitant]
     Active Substance: MIRABEGRON
  9. WELLBUTRIN [Concomitant]
     Active Substance: BUPROPION HYDROCHLORIDE
  10. PEPCID [Concomitant]
     Active Substance: FAMOTIDINE
  11. CARBIDOPA/LEVODOPA [Concomitant]
     Active Substance: CARBIDOPA\LEVODOPA
  12. LEXAPRO [Concomitant]
     Active Substance: ESCITALOPRAM OXALATE
  13. SIMVASTATIN. [Concomitant]
     Active Substance: SIMVASTATIN

REACTIONS (3)
  - Staring [Recovered/Resolved]
  - Mobility decreased [Recovered/Resolved]
  - Poverty of speech [Recovered/Resolved]

NARRATIVE: CASE EVENT DATE: 20180123
